FAERS Safety Report 11584102 (Version 1)
Quarter: 2015Q4

REPORT INFORMATION
  Report Type: Spontaneous
  Country: US (occurrence: US)
  Receive Date: 20151001
  Receipt Date: 20151001
  Transmission Date: 20160304
  Serious: No
  Sender: FDA-Public Use
  Company Number: US-ROCHE-663616

PATIENT
  Age: 43 Year
  Sex: Male

DRUGS (3)
  1. AMBIEN [Concomitant]
     Active Substance: ZOLPIDEM TARTRATE
     Indication: SOMNOLENCE
     Route: 065
  2. COPEGUS [Suspect]
     Active Substance: RIBAVIRIN
     Indication: HEPATITIS C
     Dosage: DIVIDED DOSES
     Route: 048
  3. PEGASYS [Suspect]
     Active Substance: PEGINTERFERON ALFA-2A
     Indication: HEPATITIS C
     Dosage: FORM: PRE-FILLED SYRINGE (PFS)
     Route: 058
     Dates: start: 20090601, end: 20091113

REACTIONS (18)
  - Vomiting [Unknown]
  - Nervousness [Not Recovered/Not Resolved]
  - Dizziness [Not Recovered/Not Resolved]
  - Injection site bruising [Recovering/Resolving]
  - Asthenia [Not Recovered/Not Resolved]
  - Back pain [Unknown]
  - Dry mouth [Unknown]
  - Diarrhoea [Unknown]
  - Middle insomnia [Unknown]
  - Anxiety [Unknown]
  - Insomnia [Unknown]
  - Dysgeusia [Unknown]
  - Abdominal pain upper [Unknown]
  - Asthenia [Not Recovered/Not Resolved]
  - Glossodynia [Unknown]
  - Memory impairment [Not Recovered/Not Resolved]
  - Fear [Unknown]
  - Hepatic pain [Recovered/Resolved]

NARRATIVE: CASE EVENT DATE: 20091003
